FAERS Safety Report 7228935-5 (Version None)
Quarter: 2011Q1

REPORT INFORMATION
  Report Type: 
  Country: None (occurrence: None)
  Receive Date: 20110117
  Receipt Date: 20110114
  Transmission Date: 20110831
  Serious: Yes (Death, Other)
  Sender: FDA-Public Use
  Company Number: CH-BAYER-2011-001637

PATIENT
  Age: 60 Year
  Sex: Female

DRUGS (7)
  1. MIDAZOLAM HCL [Concomitant]
     Indication: SEDATION
     Dosage: 5 MG, UNK
  2. LEPIRUDIN [Suspect]
     Indication: HEPARIN-INDUCED THROMBOCYTOPENIA
  3. HEPARIN [Concomitant]
     Indication: ANTICOAGULANT THERAPY
  4. HYDROCODONE BITARTRATE [Concomitant]
     Indication: SEDATION
     Dosage: 5 MG, UNK
  5. FLUMAZENIL [Concomitant]
     Indication: REVERSAL OF SEDATION
  6. OXYGEN [Concomitant]
     Indication: HYPOXIA
  7. NALOXONE [Concomitant]
     Indication: REVERSAL OF SEDATION

REACTIONS (2)
  - PERIPHERAL ISCHAEMIA [None]
  - AIR EMBOLISM [None]
